FAERS Safety Report 10022980 (Version 4)
Quarter: 2015Q2

REPORT INFORMATION
  Report Type: Spontaneous
  Country: US (occurrence: US)
  Receive Date: 20140319
  Receipt Date: 20150604
  Transmission Date: 20150821
  Serious: Yes (Hospitalization, Other)
  Sender: FDA-Public Use
  Company Number: US-SANOFI-AVENTIS-2012SA003384

PATIENT
  Age: 72 Year
  Sex: Male

DRUGS (3)
  1. ECOTRIN [Concomitant]
     Active Substance: ASPIRIN
     Dosage: FREQUENCY: SEMI DAILY
     Dates: start: 200912, end: 201412
  2. PLAVIX [Suspect]
     Active Substance: CLOPIDOGREL BISULFATE
     Indication: MYOCARDIAL INFARCTION
     Route: 048
     Dates: start: 20050404, end: 20091202
  3. ECOTRIN [Concomitant]
     Active Substance: ASPIRIN
     Dates: start: 200504, end: 200911

REACTIONS (3)
  - Multiple injuries [Unknown]
  - Haematuria [Unknown]
  - Haemorrhage [Unknown]

NARRATIVE: CASE EVENT DATE: 20091202
